FAERS Safety Report 5875612-9 (Version None)
Quarter: 2008Q3

REPORT INFORMATION
  Report Type: 
  Country: None (occurrence: None)
  Receive Date: 20080909
  Receipt Date: 20080827
  Transmission Date: 20090109
  Serious: Yes (Hospitalization)
  Sender: FDA-Public Use
  Company Number: US-ELI_LILLY_AND_COMPANY-US200809000260

PATIENT
  Sex: Male

DRUGS (8)
  1. BYETTA [Suspect]
     Dosage: 10 UG, UNK
     Route: 058
     Dates: start: 20070228, end: 20080109
  2. ACTOS [Concomitant]
     Indication: DIABETES MELLITUS
     Dosage: 15 MG, UNK
  3. METFORMIN [Concomitant]
     Indication: DIABETES MELLITUS
     Dosage: 500 MG, UNK
  4. LEXAPRO [Concomitant]
     Indication: DEPRESSION
     Dosage: 100 MG, DAILY (1/D)
  5. SEROQUEL [Concomitant]
     Indication: DEPRESSION
     Dosage: 50 MG, 2/D
  6. ASPIRIN [Concomitant]
  7. PRILOSEC [Concomitant]
  8. ZOCOR [Concomitant]

REACTIONS (1)
  - PANCREATITIS [None]
